FAERS Safety Report 8943700 (Version 2)
Quarter: 2012Q4

REPORT INFORMATION
  Report Type: 
  Country: US (occurrence: US)
  Receive Date: 20121203
  Receipt Date: 20121228
  Transmission Date: 20130627
  Serious: Yes (Hospitalization)
  Sender: FDA-Public Use
  Company Number: US-PFIZER INC-2012302028

PATIENT
  Age: 51 Year
  Sex: Female
  Weight: 72.11 kg

DRUGS (3)
  1. LYRICA [Suspect]
     Indication: HERNIATED DISC
     Dosage: 75 mg, 2x/day
     Dates: start: 201207
  2. LYRICA [Suspect]
     Indication: DEGENERATIVE DISC DISEASE
  3. HYDROCHLOROTHIAZIDE/LOSARTAN [Concomitant]
     Indication: BLOOD PRESSURE HIGH
     Dosage: 100/25mg, daily

REACTIONS (1)
  - Intervertebral disc protrusion [Unknown]
